FAERS Safety Report 4679277-3 (Version None)
Quarter: 2005Q2

REPORT INFORMATION
  Report Type: 
  Country: None (occurrence: None)
  Receive Date: 20050531
  Receipt Date: 20050519
  Transmission Date: 20051028
  Serious: Yes (Hospitalization)
  Sender: FDA-Public Use
  Company Number: HQWYE911224MAY05

PATIENT
  Age: 70 Year
  Sex: Male

DRUGS (15)
  1. EFFEXOR [Suspect]
     Indication: BIPOLAR DISORDER
     Dosage: SEE IMAGE
     Route: 048
     Dates: start: 20030801, end: 20050218
  2. EFFEXOR [Suspect]
     Indication: BIPOLAR DISORDER
     Dosage: SEE IMAGE
     Route: 048
     Dates: start: 20050417, end: 20050424
  3. EFFEXOR [Suspect]
     Indication: BIPOLAR DISORDER
     Dosage: SEE IMAGE
     Route: 048
     Dates: start: 20050425, end: 20050428
  4. EFFEXOR [Suspect]
     Indication: BIPOLAR DISORDER
     Dosage: SEE IMAGE
     Route: 048
     Dates: start: 20050429
  5. AKINETON [Suspect]
     Dosage: SEE IMAGE
     Route: 048
     Dates: start: 20050422, end: 20050424
  6. AKINETON [Suspect]
     Dosage: SEE IMAGE
     Route: 048
     Dates: start: 20050309, end: 20050425
  7. ENTUMIN [Suspect]
     Dosage: 40 MG 1 X PER 1 DAY
     Route: 048
     Dates: start: 20050420, end: 20050424
  8. XANAX [Suspect]
     Dosage: SEE IMAGE
     Route: 048
     Dates: start: 20050420, end: 20050421
  9. XANAX [Suspect]
     Dosage: SEE IMAGE
     Route: 048
     Dates: start: 20050422
  10. BECOZYM (VITAMIN B NOS) [Concomitant]
  11. LAMICTAL [Concomitant]
  12. PREDNISONE [Concomitant]
  13. CALCIMAGON (CALCIUM CARBONATE/COLECALCIFEROL) [Concomitant]
  14. BECOZYM (VITAMIN B NOS) [Concomitant]
  15. MAGNESIUM (MAGNESIUM) [Concomitant]

REACTIONS (10)
  - ANTIDEPRESSANT DRUG LEVEL BELOW THERAPEUTIC [None]
  - CONDITION AGGRAVATED [None]
  - DRUG LEVEL ABOVE THERAPEUTIC [None]
  - DRUG LEVEL BELOW THERAPEUTIC [None]
  - FAECALOMA [None]
  - GASTROINTESTINAL DISORDER [None]
  - PAINFUL DEFAECATION [None]
  - THERAPY NON-RESPONDER [None]
  - URINARY RETENTION [None]
  - URINARY TRACT OBSTRUCTION [None]
